FAERS Safety Report 4352040-9 (Version None)
Quarter: 2004Q2

REPORT INFORMATION
  Report Type: 
  Country: None (occurrence: None)
  Receive Date: 20040503
  Receipt Date: 20040427
  Transmission Date: 20050107
  Serious: Yes (Life-Threatening, Hospitalization)
  Sender: FDA-Public Use
  Company Number: DE-MERCK-0404DEU00152

PATIENT
  Age: 73 Year
  Sex: Male
  Weight: 85 kg

DRUGS (14)
  1. ANTITHROMBIN III [Concomitant]
     Indication: SEPSIS
     Route: 065
     Dates: end: 20040401
  2. CANCIDAS [Suspect]
     Indication: CANDIDIASIS
     Route: 042
     Dates: start: 20040415
  3. CANCIDAS [Suspect]
     Indication: ASPERGILLOSIS
     Route: 042
     Dates: start: 20040415
  4. CEFTRIAXONE SODIUM [Concomitant]
     Route: 065
  5. FAT (UNSPECIFIED) [Concomitant]
     Route: 065
  6. FLUCONAZOLE [Concomitant]
     Route: 065
  7. HEPARIN [Concomitant]
     Route: 065
     Dates: start: 20040401
  8. INSULIN [Concomitant]
     Route: 065
  9. MIDAZOLAM [Concomitant]
     Route: 065
  10. PIPERACILLIN [Concomitant]
     Route: 065
     Dates: end: 20040101
  11. PROTEIN (UNSPECIFIED) [Concomitant]
     Route: 065
  12. SUFENTANIL [Concomitant]
     Route: 065
  13. SULBACTAM [Concomitant]
     Route: 065
     Dates: end: 20040101
  14. VANCOMYCIN [Concomitant]
     Route: 065

REACTIONS (2)
  - HAEMORRHAGE [None]
  - PLATELET COUNT DECREASED [None]
